FAERS Safety Report 7192783-5 (Version None)
Quarter: 2010Q4

REPORT INFORMATION
  Report Type: 
  Country: None (occurrence: None)
  Receive Date: 20101223
  Receipt Date: 20101102
  Transmission Date: 20110411
  Serious: No
  Sender: FDA-Public Use
  Company Number: US-BAYER-201023298BCC

PATIENT
  Sex: Male

DRUGS (1)
  1. DESONATE [Suspect]
     Dosage: UNK
     Route: 061

REACTIONS (1)
  - URTICARIA [None]
